FAERS Safety Report 6321524-6 (Version None)
Quarter: 2009Q3

REPORT INFORMATION
  Report Type: 
  Country: None (occurrence: None)
  Receive Date: 20090824
  Receipt Date: 20070625
  Transmission Date: 20100115
  Serious: Yes (Other)
  Sender: FDA-Public Use
  Company Number: US-ASTRAZENECA-2006UW23056

PATIENT
  Age: 44 Year
  Sex: Female
  Weight: 92.5 kg

DRUGS (10)
  1. SEROQUEL [Suspect]
     Indication: SCHIZOPHRENIA
     Dosage: 25 MG - 200 MG QHS
     Route: 048
     Dates: start: 19980912
  2. SEROQUEL [Suspect]
     Indication: DEPRESSION
     Dosage: 25 MG - 200 MG QHS
     Route: 048
     Dates: start: 19980912
  3. HALDOL [Concomitant]
  4. RISPERDAL [Concomitant]
  5. THORAZINE [Concomitant]
  6. ZYPREXA [Concomitant]
  7. LORAZEPAM [Concomitant]
     Dates: start: 19980912
  8. WELLBUTRIN [Concomitant]
     Dates: start: 19980930
  9. PAXIL [Concomitant]
     Route: 048
     Dates: start: 20010824
  10. TRAZODONE HCL [Concomitant]
     Indication: SLEEP DISORDER
     Dosage: 100 MG - 200 MG QHS
     Dates: start: 19980903

REACTIONS (5)
  - DIABETES MELLITUS [None]
  - DIABETIC NEUROPATHY [None]
  - NEUROPATHY PERIPHERAL [None]
  - TYPE 1 DIABETES MELLITUS [None]
  - TYPE 2 DIABETES MELLITUS [None]
